FAERS Safety Report 18279543 (Version 1)
Quarter: 2020Q3

REPORT INFORMATION
  Report Type: Report from Study
  Country: DE (occurrence: DE)
  Receive Date: 20200917
  Receipt Date: 20200917
  Transmission Date: 20201103
  Serious: Yes (Hospitalization)
  Sender: FDA-Public Use
  Company Number: DE-JNJFOC-20200918704

PATIENT
  Age: 35 Year
  Sex: Male
  Weight: 83 kg

DRUGS (4)
  1. PREDNISOLON                        /00016201/ [Concomitant]
     Active Substance: PREDNISOLONE
     Indication: PSORIATIC ARTHROPATHY
     Route: 048
     Dates: start: 201903
  2. METHOTREXATE. [Suspect]
     Active Substance: METHOTREXATE
     Route: 065
     Dates: start: 20191218
  3. USTEKINUMAB [Suspect]
     Active Substance: USTEKINUMAB
     Indication: PRODUCT USED FOR UNKNOWN INDICATION
     Route: 058
     Dates: start: 20190604
  4. RANITIDINE. [Concomitant]
     Active Substance: RANITIDINE
     Indication: PSORIATIC ARTHROPATHY
     Route: 048
     Dates: start: 201902

REACTIONS (2)
  - Hypertension [Recovered/Resolved]
  - Syncope [Recovered/Resolved]

NARRATIVE: CASE EVENT DATE: 20191211
